FAERS Safety Report 9652206 (Version 2)
Quarter: 2014Q1

REPORT INFORMATION
  Report Type: Spontaneous
  Country: US (occurrence: US)
  Receive Date: 20131029
  Receipt Date: 20140313
  Transmission Date: 20141002
  Serious: No
  Sender: FDA-Public Use
  Company Number: US-BIOGENIDEC-2013BI075067

PATIENT
  Age: 55 Year
  Sex: Female

DRUGS (9)
  1. TECFIDERA [Suspect]
     Indication: MULTIPLE SCLEROSIS
     Route: 048
     Dates: start: 20130530
  2. DIAZEPAM [Concomitant]
  3. GABAPENTIN [Concomitant]
  4. BENICAR HCT [Concomitant]
  5. BACLOFEN [Concomitant]
  6. ADVIL [Concomitant]
  7. AMANTADINE HCL [Concomitant]
  8. ASPIRIN EC [Concomitant]
  9. OXYBUTYNIN CHLORIDE [Concomitant]

REACTIONS (5)
  - Neutropenia [Recovered/Resolved]
  - Headache [Unknown]
  - Flushing [Unknown]
  - Pruritus [Unknown]
  - Diarrhoea [Unknown]
